FAERS Safety Report 6298803-4 (Version None)
Quarter: 2009Q3

REPORT INFORMATION
  Report Type: 
  Country: None (occurrence: None)
  Receive Date: 20090806
  Receipt Date: 20090805
  Transmission Date: 20100115
  Serious: Yes (Disabling, Other)
  Sender: FDA-Public Use
  Company Number: US-PFIZER INC-2009186114

PATIENT
  Sex: Male
  Weight: 94.785 kg

DRUGS (17)
  1. CHANTIX [Suspect]
     Indication: SMOKING CESSATION THERAPY
     Dosage: 1 MG, 2X/DAY
     Route: 048
     Dates: start: 20081120, end: 20090505
  2. WELLBUTRIN [Concomitant]
     Dosage: 150 MG, UNK
  3. METHADONE HYDROCHLORIDE [Concomitant]
     Dosage: 10 MG, 2X/DAY
  4. FENOFIBRATE [Concomitant]
     Dosage: 200 MG, 2X/DAY
  5. CLONAZEPAM [Concomitant]
     Dosage: 0.5 MG, 2X/DAY
  6. ETODOLAC [Concomitant]
     Dosage: 400 MG, 2X/DAY
  7. ANASPAZ [Concomitant]
     Dosage: 0.125 MG, UNK
  8. LOPID [Concomitant]
     Dosage: 600 MG, 2X/DAY
  9. CLOZAPINE [Concomitant]
     Dosage: UNK
  10. ZANTAC [Concomitant]
     Dosage: UNK
  11. GABAPENTIN [Concomitant]
     Dosage: UNK
  12. TRAZODONE [Concomitant]
     Dosage: UNK
  13. OXYCODONE [Concomitant]
     Dosage: UNK
  14. METAMUCIL-2 [Concomitant]
     Dosage: UNK
  15. VITAMINS [Concomitant]
     Dosage: UNK
  16. SELENIUM [Concomitant]
     Dosage: UNK
  17. MAALOX [Concomitant]

REACTIONS (5)
  - DEPRESSION [None]
  - DISABILITY [None]
  - FEELING ABNORMAL [None]
  - MENTAL DISORDER [None]
  - NERVOUSNESS [None]
